FAERS Safety Report 8448997-7 (Version None)
Quarter: 2012Q2

REPORT INFORMATION
  Report Type: 
  Country: None (occurrence: None)
  Receive Date: 20120619
  Receipt Date: 20120615
  Transmission Date: 20120825
  Serious: Yes (Other)
  Sender: FDA-Public Use
  Company Number: US-PFIZER INC-2012145037

PATIENT
  Sex: Female
  Weight: 56.236 kg

DRUGS (1)
  1. PREPARATION H [Suspect]
     Indication: HAEMORRHOIDS
     Dosage: UNK

REACTIONS (3)
  - INTESTINAL OBSTRUCTION [None]
  - BOWEL MOVEMENT IRREGULARITY [None]
  - THERAPEUTIC RESPONSE UNEXPECTED [None]
